FAERS Safety Report 5487654-6 (Version None)
Quarter: 2007Q4

REPORT INFORMATION
  Report Type: 
  Country: None (occurrence: None)
  Receive Date: 20071016
  Receipt Date: 20071016
  Transmission Date: 20080405
  Serious: Yes (Life-Threatening)
  Sender: FDA-Public Use
  Company Number: None

PATIENT
  Age: 49 Year
  Sex: Male
  Weight: 81.6475 kg

DRUGS (1)
  1. TESTOSTERONE CYPIONATE [Suspect]
     Indication: BLOOD TESTOSTERONE DECREASED
     Dosage: 1ML EVERY 2 WEEKS IM
     Route: 030
     Dates: start: 20070828, end: 20070929

REACTIONS (4)
  - BLOOD TESTOSTERONE ABNORMAL [None]
  - DRUG INEFFECTIVE [None]
  - MALAISE [None]
  - PHARMACEUTICAL PRODUCT COMPLAINT [None]
